FAERS Safety Report 17195375 (Version 1)
Quarter: 2019Q4

REPORT INFORMATION
  Report Type: Spontaneous
  Country: BR (occurrence: BR)
  Receive Date: 20191224
  Receipt Date: 20191224
  Transmission Date: 20200122
  Serious: Yes (Hospitalization)
  Sender: FDA-Public Use
  Company Number: BR-ABBVIE-19P-020-3207536-00

PATIENT
  Age: 47 Year
  Sex: Female
  Weight: 70 kg

DRUGS (11)
  1. DEPAKENE [Suspect]
     Active Substance: VALPROIC ACID
     Indication: HALLUCINATION, AUDITORY
     Dosage: STARTED BEFORE HOSPITALIZATION
     Route: 065
     Dates: start: 2018
  2. DEPAKENE [Suspect]
     Active Substance: VALPROIC ACID
     Dosage: USED FOR 10 DAYS, WITH IMPROVEMENT, DOSE DECREASED TO 250MG
     Route: 065
  3. RISPERIDONE. [Concomitant]
     Active Substance: RISPERIDONE
     Indication: SCHIZOPHRENIA
     Dosage: AT 8AM, 2PM AND 10PM
     Route: 048
  4. PAROXETINE. [Concomitant]
     Active Substance: PAROXETINE
     Indication: OBSESSIVE-COMPULSIVE DISORDER
  5. CLONAZEPAM. [Concomitant]
     Active Substance: CLONAZEPAM
     Indication: SEDATIVE THERAPY
  6. ROSUVASTATIN. [Concomitant]
     Active Substance: ROSUVASTATIN
     Indication: BLOOD CHOLESTEROL INCREASED
     Dosage: DAILY DOSE: 1 TABLET ADMINISTERED WITH WATER AT 6PM
     Route: 048
     Dates: start: 201910
  7. DEPAKENE [Suspect]
     Active Substance: VALPROIC ACID
     Dosage: DAILY DOSE: 500MG; ADMINISTERED AT 8AM AND 10PM
     Route: 048
  8. PAROXETINE. [Concomitant]
     Active Substance: PAROXETINE
     Indication: DEPRESSION
     Dosage: DAILY DOSE: 40MG; AT 8AM AND 2PM
     Route: 048
  9. DEPAKENE [Suspect]
     Active Substance: VALPROIC ACID
     Route: 048
  10. CLONAZEPAM. [Concomitant]
     Active Substance: CLONAZEPAM
     Indication: SLEEP DISORDER THERAPY
     Dosage: DAILY DOSE: 3MG;0.5MG AT 8AM, 0.5MG AFTERNOON AND 2MG AT NIGHT
     Route: 048
  11. RISPERIDONE. [Concomitant]
     Active Substance: RISPERIDONE
     Indication: HALLUCINATION

REACTIONS (5)
  - Schizophrenia [Recovered/Resolved]
  - Product use in unapproved indication [Not Recovered/Not Resolved]
  - Product odour abnormal [Unknown]
  - Off label use [Not Recovered/Not Resolved]
  - Vitamin D decreased [Unknown]

NARRATIVE: CASE EVENT DATE: 2018
